FAERS Safety Report 23774435 (Version 1)
Quarter: 2024Q2

REPORT INFORMATION
  Report Type: Spontaneous
  Country: FR (occurrence: FR)
  Receive Date: 20240423
  Receipt Date: 20240423
  Transmission Date: 20240716
  Serious: Yes (Hospitalization)
  Sender: FDA-Public Use
  Company Number: None

PATIENT
  Age: 74 Year
  Sex: Female

DRUGS (7)
  1. PACLITAXEL [Suspect]
     Active Substance: PACLITAXEL
     Indication: Ovarian cancer
     Route: 042
     Dates: start: 20160413, end: 201706
  2. GEMCITABINE [Concomitant]
     Active Substance: GEMCITABINE
     Indication: Ovarian cancer
     Dosage: TIME INTERVAL: CYCLICAL
     Route: 042
     Dates: start: 201706, end: 201710
  3. CARBOPLATIN [Suspect]
     Active Substance: CARBOPLATIN
     Indication: Ovarian cancer
     Dosage: TIME INTERVAL: CYCLICAL
     Route: 042
     Dates: start: 201706, end: 201710
  4. AVASTIN [Concomitant]
     Active Substance: BEVACIZUMAB
     Indication: Ovarian cancer
     Route: 042
     Dates: start: 201706, end: 201711
  5. CYCLOPHOSPHAMIDE [Suspect]
     Active Substance: CYCLOPHOSPHAMIDE
     Indication: Ovarian cancer
     Route: 048
     Dates: start: 20171122, end: 201801
  6. DOXORUBICIN HYDROCHLORIDE [Suspect]
     Active Substance: DOXORUBICIN HYDROCHLORIDE
     Indication: Ovarian cancer
     Route: 042
     Dates: start: 201801, end: 20180703
  7. ALKERAN [Suspect]
     Active Substance: MELPHALAN
     Indication: Ovarian cancer
     Dosage: 8MG/DAY/ 4 DAYS PER MONTH
     Route: 048
     Dates: start: 201906, end: 202207

REACTIONS (1)
  - Acute myeloid leukaemia [Not Recovered/Not Resolved]

NARRATIVE: CASE EVENT DATE: 20231101
